FAERS Safety Report 14066438 (Version 19)
Quarter: 2022Q1

REPORT INFORMATION
  Report Type: Report from Study
  Country: NL (occurrence: NL)
  Receive Date: 20171009
  Receipt Date: 20220106
  Transmission Date: 20220423
  Serious: Yes (Hospitalization)
  Sender: FDA-Public Use
  Company Number: NL-ABBVIE-17K-114-2115276-00

PATIENT
  Age: 66 Year
  Sex: Male
  Weight: 72 kg

DRUGS (12)
  1. CARBIDOPA\LEVODOPA [Suspect]
     Active Substance: CARBIDOPA\LEVODOPA
     Indication: Parkinson^s disease
     Dosage: MD: 8.5, CD: 6.4, ED: 3.0, CND: 4.0, END: 3
     Route: 050
     Dates: start: 20130710
  2. CARBIDOPA\LEVODOPA [Suspect]
     Active Substance: CARBIDOPA\LEVODOPA
     Dosage: MD: 8.5, CD: 6.7, ED: 3.0, CND: 4.8, END: 3 24 HOUR ADMINISTRATION
     Route: 050
  3. CARBIDOPA\LEVODOPA [Suspect]
     Active Substance: CARBIDOPA\LEVODOPA
     Dosage: DAY MD 8.0, CD 5.9; ED 2.8 , NIGHT: CD 3.0 , ED 2.5
     Route: 050
  4. CARBIDOPA\LEVODOPA [Suspect]
     Active Substance: CARBIDOPA\LEVODOPA
     Dosage: MD: 8.0ML, CD: 5.9ML/H, ED: 2.5ML
     Route: 050
  5. CARBIDOPA\LEVODOPA [Suspect]
     Active Substance: CARBIDOPA\LEVODOPA
     Dosage: MD: 8.0ML CD: 5.9ML/H ED: 2.8ML CND: 3.0ML/H END: 2.5ML
     Route: 050
  6. CARBIDOPA\LEVODOPA [Suspect]
     Active Substance: CARBIDOPA\LEVODOPA
     Dosage: END: 2.5ML, CND: 3.2ML/H
     Route: 050
  7. CARBIDOPA\LEVODOPA [Suspect]
     Active Substance: CARBIDOPA\LEVODOPA
     Dosage: MD:8.0ML, CD:6.1ML/H, ED:2.8ML, END:2.5ML, CND: 3.4ML/H
     Route: 050
  8. CARBIDOPA\LEVODOPA [Suspect]
     Active Substance: CARBIDOPA\LEVODOPA
     Dosage: MD:8.0ML, CD:6.1ML/H, ED:3.3ML, END:3.0ML, CND: 3.4ML/H
     Route: 050
  9. MOVICOLON [Suspect]
     Active Substance: POLYETHYLENE GLYCOL 3350\POTASSIUM CHLORIDE\SODIUM BICARBONATE\SODIUM CHLORIDE
     Indication: Constipation
     Route: 065
  10. ENTACAPONE [Concomitant]
     Active Substance: ENTACAPONE
     Indication: Parkinson^s disease
  11. CIPROFLOXACIN [Concomitant]
     Active Substance: CIPROFLOXACIN
     Indication: Urinary tract infection
     Dates: start: 20191111
  12. CARBOHYDRATES\FATTY ACIDS\MINERALS\PROTEIN\VITAMINS [Concomitant]
     Active Substance: CARBOHYDRATES\FATTY ACIDS\MINERALS\PROTEIN\VITAMINS
     Indication: Product used for unknown indication

REACTIONS (52)
  - Device placement issue [Recovered/Resolved]
  - Urinary tract infection [Unknown]
  - Neurological complication associated with device [Recovered/Resolved]
  - Parkinson^s disease [Recovered/Resolved]
  - Initial insomnia [Not Recovered/Not Resolved]
  - Poor quality sleep [Not Recovered/Not Resolved]
  - Pain in extremity [Not Recovered/Not Resolved]
  - Weight abnormal [Unknown]
  - Cognitive disorder [Not Recovered/Not Resolved]
  - Muscle rigidity [Not Recovered/Not Resolved]
  - Musculoskeletal stiffness [Recovered/Resolved]
  - Memory impairment [Recovered/Resolved]
  - Nocturia [Not Recovered/Not Resolved]
  - Mobility decreased [Not Recovered/Not Resolved]
  - Anal incontinence [Not Recovered/Not Resolved]
  - Fall [Not Recovered/Not Resolved]
  - Hypotension [Not Recovered/Not Resolved]
  - Muscle spasms [Not Recovered/Not Resolved]
  - Abnormal dreams [Recovered/Resolved]
  - Weight decreased [Recovered/Resolved]
  - Weight increased [Unknown]
  - Decreased appetite [Recovered/Resolved]
  - Constipation [Recovered/Resolved]
  - Flatulence [Unknown]
  - Vomiting [Unknown]
  - On and off phenomenon [Not Recovered/Not Resolved]
  - Dyskinesia [Recovering/Resolving]
  - Bradykinesia [Not Recovered/Not Resolved]
  - Stoma site discharge [Recovered/Resolved]
  - Stoma site erythema [Not Recovered/Not Resolved]
  - Parkinson^s disease [Unknown]
  - Therapeutic product effect variable [Not Recovered/Not Resolved]
  - Product colour issue [Unknown]
  - Device dislocation [Not Recovered/Not Resolved]
  - Nightmare [Recovered/Resolved]
  - Polyneuropathy [Not Recovered/Not Resolved]
  - Impaired quality of life [Unknown]
  - Unevaluable event [Not Recovered/Not Resolved]
  - Gait disturbance [Not Recovered/Not Resolved]
  - Freezing phenomenon [Not Recovered/Not Resolved]
  - Reduced facial expression [Not Recovered/Not Resolved]
  - Stoma site discharge [Not Recovered/Not Resolved]
  - Stoma site erythema [Recovered/Resolved]
  - Therapeutic product effect incomplete [Recovered/Resolved]
  - Posture abnormal [Not Recovered/Not Resolved]
  - Disinhibition [Not Recovered/Not Resolved]
  - Euphoric mood [Not Recovered/Not Resolved]
  - Therapeutic product effect delayed [Unknown]
  - Medical device discomfort [Unknown]
  - Unevaluable event [Not Recovered/Not Resolved]
  - Device physical property issue [Recovered/Resolved]
  - Device occlusion [Unknown]

NARRATIVE: CASE EVENT DATE: 20170901
